FAERS Safety Report 7404348-8 (Version None)
Quarter: 2011Q2

REPORT INFORMATION
  Report Type: 
  Country: None (occurrence: None)
  Receive Date: 20110408
  Receipt Date: 20110406
  Transmission Date: 20111010
  Serious: Yes (Hospitalization)
  Sender: FDA-Public Use
  Company Number: AR-ABBOTT-11P-007-0711148-00

PATIENT
  Sex: Male
  Weight: 85 kg

DRUGS (3)
  1. SEVOFLURANE [Suspect]
     Indication: ANAESTHESIA
     Route: 055
  2. AMOXICILLIN AND CLAVULANATE POTASSIUM [Concomitant]
     Indication: PROPHYLAXIS
     Dosage: 2 GR ONE HOUR BEFORE SURGERY
  3. HEPARINA SODIC [Concomitant]
     Indication: PRODUCT USED FOR UNKNOWN INDICATION
     Route: 058

REACTIONS (1)
  - VENTRICULAR FIBRILLATION [None]
